FAERS Safety Report 25461879 (Version 1)
Quarter: 2025Q2

REPORT INFORMATION
  Report Type: Spontaneous
  Country: US (occurrence: None)
  Receive Date: 20250619
  Receipt Date: 20250619
  Transmission Date: 20250717
  Serious: No
  Sender: FDA-CTU
  Company Number: None

PATIENT
  Age: 35 Year
  Sex: Female
  Weight: 81.45 kg

DRUGS (1)
  1. BOTOX [Suspect]
     Active Substance: ONABOTULINUMTOXINA
     Indication: Migraine
     Dates: start: 20250528

REACTIONS (4)
  - Musculoskeletal stiffness [None]
  - Eyelid ptosis [None]
  - Facial discomfort [None]
  - Muscular weakness [None]

NARRATIVE: CASE EVENT DATE: 20250528
